FAERS Safety Report 5382984-0 (Version None)
Quarter: 2007Q3

REPORT INFORMATION
  Report Type: 
  Country: None (occurrence: None)
  Receive Date: 20070710
  Receipt Date: 20070706
  Transmission Date: 20080115
  Serious: Yes (Life-Threatening)
  Sender: FDA-Public Use
  Company Number: B0472282B

PATIENT
  Sex: Male

DRUGS (2)
  1. CLAMOXYL IV [Suspect]
     Dosage: 2G SINGLE DOSE
     Dates: start: 20070407, end: 20070407
  2. PAROXETINE HCL [Suspect]
     Indication: DEPRESSION
     Dates: start: 20060601, end: 20060601

REACTIONS (14)
  - ANOXIC ENCEPHALOPATHY [None]
  - BRADYCARDIA FOETAL [None]
  - CLONUS [None]
  - DRUG EXPOSURE DURING PREGNANCY [None]
  - ELECTROENCEPHALOGRAM ABNORMAL [None]
  - EXTRAPYRAMIDAL DISORDER [None]
  - FOETAL DISTRESS SYNDROME [None]
  - HAEMODYNAMIC INSTABILITY [None]
  - HYPOTONIA [None]
  - MOVEMENT DISORDER [None]
  - MYDRIASIS [None]
  - NEONATAL ASPHYXIA [None]
  - NERVOUS SYSTEM DISORDER [None]
  - NEUROLOGICAL SYMPTOM [None]
